FAERS Safety Report 7020697-X (Version None)
Quarter: 2010Q3

REPORT INFORMATION
  Report Type: 
  Country: None (occurrence: None)
  Receive Date: 20100929
  Receipt Date: 20100920
  Transmission Date: 20110219
  Serious: Yes (Hospitalization)
  Sender: FDA-Public Use
  Company Number: PHHY2010IT62424

PATIENT
  Sex: Female

DRUGS (2)
  1. TEGRETOL [Suspect]
     Indication: ACUTE PSYCHOSIS
     Dosage: 400 MG, UNK
     Route: 048
     Dates: start: 20100726, end: 20100825
  2. AUGMENTIN '125' [Concomitant]
     Indication: EAR INFECTION
     Dosage: 875 MG/125 MG, UNK
     Route: 048
     Dates: start: 20100818, end: 20100821

REACTIONS (2)
  - ANGIOEDEMA [None]
  - DERMATITIS [None]
